FAERS Safety Report 4304141-9 (Version None)
Quarter: 2004Q1

REPORT INFORMATION
  Report Type: 
  Country: None (occurrence: None)
  Receive Date: 20040225
  Receipt Date: 20040216
  Transmission Date: 20041129
  Serious: Yes (Hospitalization)
  Sender: FDA-Public Use
  Company Number: DE-BRISTOL-MYERS SQUIBB COMPANY-12508719

PATIENT
  Age: 72 Year
  Sex: Female
  Weight: 62 kg

DRUGS (2)
  1. TAXOL [Suspect]
     Indication: OVARIAN CANCER
     Route: 042
     Dates: start: 20040210, end: 20040210
  2. RIBOCARBO [Suspect]
     Indication: OVARIAN CANCER
     Route: 042
     Dates: start: 20040210, end: 20040210

REACTIONS (2)
  - SYNCOPE VASOVAGAL [None]
  - VERTIGO [None]
